FAERS Safety Report 9292249 (Version 1)
Quarter: 2012Q4

REPORT INFORMATION
  Report Type: Spontaneous
  Country: AU (occurrence: None)
  Receive Date: 20121127
  Receipt Date: 20121127
  Transmission Date: 20130627
  Serious: Yes (Hospitalization)
  Sender: FDA-Public Use
  Company Number: ACO_32519_2012

PATIENT
  Age: 50 Year
  Sex: Male

DRUGS (11)
  1. FAMPRIDINE-SR (FAMPRIDINE) TABLET [Suspect]
     Indication: MULTIPLE SCLEROSIS
     Route: 048
     Dates: start: 20120626, end: 20121015
  2. FAMPRIDINE-SR (FAMPRIDINE) TABLET [Suspect]
     Indication: MULTIPLE SCLEROSIS
     Route: 048
     Dates: start: 20121024
  3. GILENYA (FINGOLIMOD HYDROCHLORIDE) [Concomitant]
  4. NEXIUM (ESOMEPRAZOLE MAGNESIUM) [Concomitant]
  5. FISH OIL (FISH OIL) [Concomitant]
  6. VITAMIN D (COLECALCIFEROL) [Concomitant]
  7. MULTIVITAMIN (VITAMINS NOS) [Concomitant]
  8. PANADOL (PARACETAMOL) [Concomitant]
  9. MAGNESIUM (MAGNESIUM) [Concomitant]
  10. VALIUM (DIAZEPAM) [Concomitant]
  11. LOVAN (FLUOXETINE HYDROCHLORIDE) [Concomitant]

REACTIONS (8)
  - Appendicitis [None]
  - Peritonitis [None]
  - Fall [None]
  - Haematuria [None]
  - Pyelonephritis [None]
  - Muscular weakness [None]
  - Appendicitis perforated [None]
  - Sepsis [None]
